FAERS Safety Report 17400825 (Version 4)
Quarter: 2024Q3

REPORT INFORMATION
  Report Type: Report from Study
  Country: CA (occurrence: CA)
  Receive Date: 20200211
  Receipt Date: 20240822
  Transmission Date: 20241016
  Serious: Yes (Hospitalization, Other)
  Sender: ROCHE
  Company Number: CA-002147023-NVSC2020CA030954

PATIENT
  Age: 79 Year
  Sex: Male

DRUGS (8)
  1. XOLAIR [Suspect]
     Active Substance: OMALIZUMAB
     Indication: Asthma
     Route: 058
     Dates: start: 20200131
  2. XOLAIR [Suspect]
     Active Substance: OMALIZUMAB
     Route: 058
     Dates: start: 20200228
  3. XOLAIR [Suspect]
     Active Substance: OMALIZUMAB
     Route: 058
     Dates: start: 20200327
  4. XOLAIR [Suspect]
     Active Substance: OMALIZUMAB
     Route: 058
     Dates: start: 20210426
  5. XOLAIR [Suspect]
     Active Substance: OMALIZUMAB
     Route: 058
  6. XOLAIR [Suspect]
     Active Substance: OMALIZUMAB
     Dosage: SOLUTION FOR INJECTION IN PRE-FILLED SYRINGE
     Route: 058
     Dates: start: 20200131
  7. XOLAIR [Suspect]
     Active Substance: OMALIZUMAB
     Route: 058
  8. FUROSEMIDE [Concomitant]
     Active Substance: FUROSEMIDE
     Indication: Product used for unknown indication
     Dosage: UNK
     Route: 065

REACTIONS (12)
  - Brain oedema [Unknown]
  - Blood pressure increased [Unknown]
  - Gait disturbance [Unknown]
  - Abdominal pain [Unknown]
  - Blood pressure systolic increased [Unknown]
  - Fall [Unknown]
  - Blood pressure diastolic decreased [Unknown]
  - Muscular weakness [Unknown]
  - Illness [Unknown]
  - Syncope [Unknown]
  - Craniofacial fracture [Unknown]
  - Scratch [Unknown]

NARRATIVE: CASE EVENT DATE: 20200131
